FAERS Safety Report 12676239 (Version 1)
Quarter: 2016Q3

REPORT INFORMATION
  Report Type: Spontaneous
  Country: US (occurrence: None)
  Receive Date: 20160822
  Receipt Date: 20160822
  Transmission Date: 20161109
  Serious: No
  Sender: FDA-Public Use
  Company Number: None

PATIENT

DRUGS (1)
  1. MONUROL [Suspect]
     Active Substance: FOSFOMYCIN TROMETHAMINE
     Indication: URINARY TRACT INFECTION
     Dosage: SINGLE DOSE 1 TIME MOUTH-MIX WITH WATER + DRINK
     Route: 048
     Dates: start: 20160707

REACTIONS (4)
  - Urticaria [None]
  - Hot flush [None]
  - Muscle spasms [None]
  - Poor quality sleep [None]
